FAERS Safety Report 9678480 (Version 3)
Quarter: 2014Q1

REPORT INFORMATION
  Report Type: Report from Study
  Country: CN (occurrence: CN)
  Receive Date: 20131108
  Receipt Date: 20140124
  Transmission Date: 20141002
  Serious: Yes (Other)
  Sender: FDA-Public Use
  Company Number: CN-ABBVIE-13P-035-1036853-00

PATIENT
  Age: 35 Year
  Sex: Male
  Weight: 56 kg

DRUGS (4)
  1. HUMIRA [Suspect]
     Indication: PSORIASIS
     Route: 058
     Dates: start: 20120917, end: 20121231
  2. CEFTIOFUR SODIUM [Concomitant]
     Indication: PYREXIA
     Route: 042
     Dates: start: 20130104, end: 20130106
  3. POTASSIUM SODIUM DEHYDROANDROAN DROGRAPHOLIDE SUCCINATE [Concomitant]
     Indication: PYREXIA
     Route: 042
     Dates: start: 20130104, end: 20130106
  4. LEVOFLOXACIN [Concomitant]
     Indication: PYREXIA
     Route: 042
     Dates: start: 20130104, end: 20130106

REACTIONS (1)
  - Pleural fibrosis [Not Recovered/Not Resolved]
